FAERS Safety Report 9173675 (Version 1)
Quarter: 2013Q1

REPORT INFORMATION
  Report Type: Spontaneous
  Country: US (occurrence: None)
  Receive Date: 20130313
  Receipt Date: 20130313
  Transmission Date: 20140127
  Serious: No
  Sender: FDA-Public Use
  Company Number: AEUSA201200395

PATIENT
  Age: 65 Year
  Sex: Female
  Weight: 66.23 kg

DRUGS (5)
  1. PROLASTIN-C [Suspect]
     Indication: ALPHA-1 ANTI-TRYPSIN DEFICIENCY
     Route: 042
     Dates: start: 2010
  2. SINGULAIR [Concomitant]
  3. SPIRIVA [Concomitant]
  4. PROVENTIL [Concomitant]
  5. ADVAIR [Concomitant]

REACTIONS (3)
  - Dizziness [None]
  - Fatigue [None]
  - Headache [None]
